FAERS Safety Report 4549969-5 (Version None)
Quarter: 2005Q1

REPORT INFORMATION
  Report Type: 
  Country: None (occurrence: None)
  Receive Date: 20050110
  Receipt Date: 20050106
  Transmission Date: 20050727
  Serious: Yes (Hospitalization)
  Sender: FDA-Public Use
  Company Number: MK200412-0395-1

PATIENT
  Age: 78 Year
  Sex: Male

DRUGS (2)
  1. NEUTROSPEC [Suspect]
     Indication: DYSPNOEA
     Dosage: 20.9 MCI, ONCE, IV
     Route: 042
     Dates: start: 20041223, end: 20041223
  2. NEUTROSPEC [Suspect]
     Indication: PYREXIA
     Dosage: 20.9 MCI, ONCE, IV
     Route: 042
     Dates: start: 20041223, end: 20041223

REACTIONS (2)
  - OXYGEN SATURATION DECREASED [None]
  - RESPIRATORY DISTRESS [None]
